FAERS Safety Report 15450210 (Version 6)
Quarter: 2019Q2

REPORT INFORMATION
  Report Type: Spontaneous
  Country: US (occurrence: US)
  Receive Date: 20181001
  Receipt Date: 20190405
  Transmission Date: 20190711
  Serious: No
  Sender: FDA-Public Use
  Company Number: US-PFIZER INC-2018388608

PATIENT
  Age: 48 Year
  Sex: Male

DRUGS (1)
  1. SOMAVERT [Suspect]
     Active Substance: PEGVISOMANT
     Dosage: 15 MG, 3 TIMES WEEKLY
     Route: 058

REACTIONS (6)
  - Product use issue [Unknown]
  - Nasopharyngitis [Unknown]
  - Weight increased [Unknown]
  - Blood growth hormone increased [Unknown]
  - Blood testosterone increased [Unknown]
  - Fatigue [Unknown]
